FAERS Safety Report 12877741 (Version 1)
Quarter: 2016Q4

REPORT INFORMATION
  Report Type: Spontaneous
  Country: US (occurrence: US)
  Receive Date: 20161024
  Receipt Date: 20161024
  Transmission Date: 20170207
  Serious: No
  Sender: FDA-Public Use
  Company Number: US-ALK-ABELLO A/S-1058685

PATIENT
  Sex: Male

DRUGS (3)
  1. COMMON PAPER WASP VENOM PROTEIN [Suspect]
     Active Substance: POLISTES FUSCATUS VENOM PROTEIN
     Route: 058
  2. HONEY BEE VENOM [Suspect]
     Active Substance: APIS MELLIFERA VENOM
     Route: 058
  3. VENOMS, MIXED VESPID VENOM PROTEIN [Suspect]
     Active Substance: DOLICHOVESPULA ARENARIA VENOM PROTEIN\ DOLICHOVESPULA MACULATA VENOM PROTEIN\ VESPULA MACULIFRONS VENOM PROTEIN
     Route: 058

REACTIONS (1)
  - Hypersensitivity [None]
